FAERS Safety Report 8177157-2 (Version None)
Quarter: 2012Q1

REPORT INFORMATION
  Report Type: 
  Country: None (occurrence: None)
  Receive Date: 20120301
  Receipt Date: 20120224
  Transmission Date: 20120608
  Serious: Yes (Hospitalization)
  Sender: FDA-Public Use
  Company Number: JP-GLAXOSMITHKLINE-B0784671A

PATIENT
  Age: 34 Year
  Sex: Female

DRUGS (5)
  1. UNKNOWN DRUG [Suspect]
     Indication: SINUSITIS
     Route: 065
     Dates: start: 20120217
  2. KEPPRA [Concomitant]
     Indication: EPILEPSY
     Route: 048
     Dates: start: 20110501
  3. TOPIRAMATE [Concomitant]
     Indication: EPILEPSY
     Route: 048
     Dates: start: 20110501
  4. ANTIBIOTIC [Concomitant]
  5. LAMICTAL [Suspect]
     Indication: EPILEPSY
     Dosage: 200MG PER DAY
     Route: 048
     Dates: start: 20120117, end: 20120217

REACTIONS (1)
  - SKIN DISORDER [None]
